FAERS Safety Report 8112159-3 (Version None)
Quarter: 2012Q1

REPORT INFORMATION
  Report Type: 
  Country: None (occurrence: None)
  Receive Date: 20120203
  Receipt Date: 20120124
  Transmission Date: 20120608
  Serious: Yes (Hospitalization)
  Sender: FDA-Public Use
  Company Number: US-GILEAD-2012-0049957

PATIENT
  Age: 62 Year
  Sex: Male

DRUGS (6)
  1. RANEXA [Interacting]
     Dosage: 500 MG, UNK
  2. DILTIAZEM HCL [Concomitant]
  3. PREDNISONE TAB [Concomitant]
  4. RANEXA [Suspect]
     Indication: MYOCARDIAL ISCHAEMIA
     Dosage: 1000 MG, BID
  5. ENALAPRIL MALEATE [Concomitant]
  6. TACROLIMUS [Concomitant]
     Indication: RENAL TRANSPLANT

REACTIONS (2)
  - DRUG INTERACTION [None]
  - RENAL FAILURE ACUTE [None]
